FAERS Safety Report 6901136-3 (Version None)
Quarter: 2010Q3

REPORT INFORMATION
  Report Type: 
  Country: None (occurrence: None)
  Receive Date: 20100708
  Receipt Date: 20090731
  Transmission Date: 20110219
  Serious: Yes (Other)
  Sender: FDA-Public Use
  Company Number: 2009251895

PATIENT
  Age: 23 Year
  Sex: Female
  Weight: 81.6 kg

DRUGS (9)
  1. CHANTIX [Suspect]
     Indication: SMOKING CESSATION THERAPY
     Dosage: FREQUENCY: 2X/DAY, EVERYDAY;, ORAL
     Route: 048
     Dates: start: 20090622, end: 20090719
  2. VITAMINS [Concomitant]
  3. NASONEX [Concomitant]
  4. PRO-AIR (PROCATEROL HYDROCHLORIDE) [Concomitant]
  5. KLONOPIN [Concomitant]
  6. NEXIUM [Concomitant]
  7. PAXIL [Concomitant]
  8. ZYRTEC [Concomitant]
  9. TRILEPTAL [Concomitant]

REACTIONS (3)
  - ABNORMAL BEHAVIOUR [None]
  - ABNORMAL DREAMS [None]
  - SUICIDAL IDEATION [None]
